FAERS Safety Report 15050206 (Version 1)
Quarter: 2018Q3

REPORT INFORMATION
  Report Type: Spontaneous
  Country: FR (occurrence: FR)
  Receive Date: 20180622
  Receipt Date: 20180622
  Transmission Date: 20181010
  Serious: Yes (Hospitalization)
  Sender: FDA-Public Use
  Company Number: FR-MYLANLABS-16X-056-1243540-00

PATIENT
  Age: 89 Year
  Sex: Male

DRUGS (8)
  1. CEFIXIME (NOS) [Concomitant]
     Active Substance: CEFIXIME
     Indication: URINARY TRACT INFECTION
     Dosage: UNK
     Dates: start: 20151201
  2. ACETAMINOPHEN\CAFFEINE\PROPOXYPHENE [Suspect]
     Active Substance: ACETAMINOPHEN\CAFFEINE\PROPOXYPHENE
     Indication: BACK PAIN
     Dosage: UNK
     Route: 048
     Dates: start: 201511, end: 20151123
  3. ISOPTINE [Suspect]
     Active Substance: VERAPAMIL HYDROCHLORIDE
     Indication: HYPERTENSION
     Dosage: 1/2 DF,ONCE
     Route: 048
  4. EFFERALGAN CODEINE [Suspect]
     Active Substance: ACETAMINOPHEN\CODEINE PHOSPHATE
     Indication: BACK PAIN
     Dosage: UNK
     Route: 048
     Dates: start: 201511, end: 20151123
  5. PREVISCAN 20 MG [Suspect]
     Active Substance: FLUINDIONE
     Indication: ATRIAL FIBRILLATION
     Dosage: UNK, LONG COURSE THERAPY
     Route: 048
  6. PREDNISOLONE. [Suspect]
     Active Substance: PREDNISOLONE
     Indication: BACK PAIN
     Dosage: UNK
     Route: 065
     Dates: start: 201511, end: 20151123
  7. PERMIXON [Suspect]
     Active Substance: HERBALS\SAW PALMETTO
     Indication: MICTURITION DISORDER
     Dosage: 1 DF, QD
     Route: 065
  8. ZESTORETIC [Suspect]
     Active Substance: HYDROCHLOROTHIAZIDE\LISINOPRIL
     Indication: HYPERTENSION
     Dosage: UNK,LONG COURSE THERAPY
     Route: 048
     Dates: end: 20151202

REACTIONS (2)
  - Fall [Not Recovered/Not Resolved]
  - Loss of consciousness [None]

NARRATIVE: CASE EVENT DATE: 201511
